FAERS Safety Report 17579377 (Version 2)
Quarter: 2020Q2

REPORT INFORMATION
  Report Type: Report from Study
  Country: US (occurrence: US)
  Receive Date: 20200325
  Receipt Date: 20200505
  Transmission Date: 20200713
  Serious: No
  Sender: FDA-Public Use
  Company Number: NVSC2020US077448

PATIENT
  Sex: Female
  Weight: 63.56 kg

DRUGS (16)
  1. AVASTIN [Suspect]
     Active Substance: BEVACIZUMAB
     Dosage: 0.75 DF (3/4 OF FULL DOSE)
     Route: 065
  2. HUMALOG [Concomitant]
     Active Substance: INSULIN LISPRO
     Indication: DIABETES MELLITUS
     Dosage: UNK, QID (STARTED AT 18 YEARS OLD VIA SLIDING SCALE)
     Route: 058
  3. LUCENTIS [Suspect]
     Active Substance: RANIBIZUMAB
     Indication: TYPE 2 DIABETES MELLITUS
     Dosage: 1 DF
     Route: 050
     Dates: start: 2011
  4. AVASTIN [Suspect]
     Active Substance: BEVACIZUMAB
     Dosage: 1 DF (FULL DOSE)
     Route: 065
     Dates: start: 2019
  5. LANTUS [Concomitant]
     Active Substance: INSULIN GLARGINE
     Indication: DIABETES MELLITUS
  6. LUCENTIS [Suspect]
     Active Substance: RANIBIZUMAB
     Indication: DIABETIC RETINAL OEDEMA
     Dosage: 1/2 FULL DOSE;ONGOING: NO
     Route: 050
     Dates: end: 2019
  7. METFORMIN [Concomitant]
     Active Substance: METFORMIN HYDROCHLORIDE
     Indication: DIABETES MELLITUS
     Dosage: 750 MG, BID (STARTED 30 TO 40 YEARS AGO)
     Route: 048
  8. LANTUS [Concomitant]
     Active Substance: INSULIN GLARGINE
     Indication: DIABETES MELLITUS
     Dosage: STARTED 25 YEARS AGO STOPPED 2018;ONGOING: NO
     Route: 058
     Dates: end: 2018
  9. LUCENTIS [Suspect]
     Active Substance: RANIBIZUMAB
     Dosage: 3/4 FULL DOSE
     Route: 050
  10. AVASTIN [Suspect]
     Active Substance: BEVACIZUMAB
     Indication: DIABETIC RETINAL OEDEMA
     Dosage: 0.5 DF (1/2 FULL DOSE)
     Route: 065
  11. HUMALOG [Concomitant]
     Active Substance: INSULIN LISPRO
     Indication: DIABETES MELLITUS
     Dosage: STARTED AT 18 YEARS OLD VIA SLIDING SCALE;ONGOING: YES
     Route: 058
  12. LUCENTIS [Suspect]
     Active Substance: RANIBIZUMAB
     Dosage: 0.3 MG, QMO
     Route: 031
  13. LUCENTIS [Suspect]
     Active Substance: RANIBIZUMAB
     Indication: DIABETIC RETINOPATHY
     Dosage: 0.75 DF (3/4 FULL DOSE)
     Route: 031
  14. LUCENTIS [Suspect]
     Active Substance: RANIBIZUMAB
     Dosage: 0.3 MG, 0.3 MG PFS
     Route: 050
  15. GABAPENTIN. [Suspect]
     Active Substance: GABAPENTIN
     Indication: DIABETIC NEUROPATHY
     Dosage: 2 TO 3 TIMES PER DAY;ONGOING: YES
     Route: 048
     Dates: start: 2012
  16. METFORMIN [Concomitant]
     Active Substance: METFORMIN HYDROCHLORIDE
     Indication: DIABETES MELLITUS
     Dosage: STARTED 30 TO 40 YEARS AGO;ONGOING: YES
     Route: 065

REACTIONS (8)
  - Drug ineffective [Unknown]
  - Off label use [Unknown]
  - Intentional product use issue [Unknown]
  - Swelling [Not Recovered/Not Resolved]
  - Visual impairment [Not Recovered/Not Resolved]
  - Vision blurred [Not Recovered/Not Resolved]
  - Eye pain [Not Recovered/Not Resolved]
  - Intraocular pressure increased [Not Recovered/Not Resolved]

NARRATIVE: CASE EVENT DATE: 2011
